FAERS Safety Report 7540317-5 (Version None)
Quarter: 2011Q2

REPORT INFORMATION
  Report Type: 
  Country: None (occurrence: None)
  Receive Date: 20110610
  Receipt Date: 20110531
  Transmission Date: 20111010
  Serious: Yes (Hospitalization)
  Sender: FDA-Public Use
  Company Number: CH-BRISTOL-MYERS SQUIBB COMPANY-15792732

PATIENT
  Age: 37 Year
  Sex: Male

DRUGS (2)
  1. ARIPIPRAZOLE [Suspect]
     Indication: HALLUCINATION, AUDITORY
     Dosage: REDUCED DOSE 10MG/DAY.
  2. LAMOTRIGINE [Suspect]
     Dosage: USING FROM LAST 9 MONTHS.

REACTIONS (4)
  - AFFECTIVE DISORDER [None]
  - PSYCHOTIC DISORDER [None]
  - COGNITIVE DISORDER [None]
  - EXTRAPYRAMIDAL DISORDER [None]
